FAERS Safety Report 15345187 (Version 2)
Quarter: 2019Q2

REPORT INFORMATION
  Report Type: Report from Study
  Country: DO (occurrence: DO)
  Receive Date: 20180903
  Receipt Date: 20190523
  Transmission Date: 20190711
  Serious: Yes (Hospitalization, Other)
  Sender: FDA-Public Use
  Company Number: PHHY2018DO073981

PATIENT
  Sex: Male
  Weight: 21 kg

DRUGS (3)
  1. HYDROXYUREA. [Concomitant]
     Active Substance: HYDROXYUREA
     Indication: PRODUCT USED FOR UNKNOWN INDICATION
     Dosage: 500 MG, QD
     Route: 048
  2. FOLIC ACID. [Concomitant]
     Active Substance: FOLIC ACID
     Indication: PRODUCT USED FOR UNKNOWN INDICATION
     Dosage: 5 MG, QD
     Route: 048
  3. EXJADE [Suspect]
     Active Substance: DEFERASIROX
     Indication: SERUM FERRITIN INCREASED
     Dosage: 500 MG, UNK
     Route: 065
     Dates: start: 20180209, end: 201803

REACTIONS (10)
  - Pyrexia [Unknown]
  - Hypersensitivity [Unknown]
  - Erythema [Unknown]
  - Ear swelling [Unknown]
  - Haemoglobin decreased [Unknown]
  - Nasal oedema [Unknown]
  - Urticaria [Unknown]
  - Serum ferritin increased [Unknown]
  - Ultrasound Doppler abnormal [Unknown]
  - Liver function test increased [Unknown]
